FAERS Safety Report 6704348-7 (Version None)
Quarter: 2010Q2

REPORT INFORMATION
  Report Type: 
  Country: None (occurrence: None)
  Receive Date: 20100430
  Receipt Date: 20100423
  Transmission Date: 20101027
  Serious: Yes (Other)
  Sender: FDA-Public Use
  Company Number: JP-MERCK-1004USA04016

PATIENT
  Age: 89 Year
  Sex: Female

DRUGS (3)
  1. JANUVIA [Suspect]
     Indication: TYPE 2 DIABETES MELLITUS
     Route: 048
     Dates: start: 20100331
  2. AMARYL [Concomitant]
     Route: 065
     Dates: end: 20100401
  3. ACTOS [Concomitant]
     Route: 065
     Dates: end: 20100401

REACTIONS (1)
  - HYPOGLYCAEMIA [None]
